FAERS Safety Report 4852812-8 (Version None)
Quarter: 2005Q4

REPORT INFORMATION
  Report Type: 
  Country: None (occurrence: None)
  Receive Date: 20051209
  Receipt Date: 20051129
  Transmission Date: 20060501
  Serious: Yes (Hospitalization, Other)
  Sender: FDA-Public Use
  Company Number: 05-0148PO

PATIENT
  Age: 60 Year
  Sex: Male

DRUGS (1)
  1. PONSTEL [Suspect]
     Indication: ILL-DEFINED DISORDER

REACTIONS (3)
  - ANAPHYLACTIC SHOCK [None]
  - DRUG INTERACTION [None]
  - HYPERSENSITIVITY [None]
